FAERS Safety Report 5869291-4 (Version None)
Quarter: 2008Q3

REPORT INFORMATION
  Report Type: 
  Country: None (occurrence: None)
  Receive Date: 20080828
  Receipt Date: 20080812
  Transmission Date: 20090109
  Serious: Yes (Other)
  Sender: FDA-Public Use
  Company Number: FABR-1000377

PATIENT
  Age: 33 Year
  Sex: Male

DRUGS (3)
  1. FABRAZYME [Suspect]
     Indication: FABRY'S DISEASE
     Dosage: 110 MG, Q2W, INTRAVENOUS
     Route: 042
     Dates: start: 20030901
  2. ACETAMINOPHEN [Concomitant]
  3. BENADRYL [Concomitant]

REACTIONS (1)
  - MALIGNANT MELANOMA [None]
